FAERS Safety Report 21370035 (Version 1)
Quarter: 2022Q3

REPORT INFORMATION
  Report Type: Spontaneous
  Country: CA (occurrence: CA)
  Receive Date: 20220923
  Receipt Date: 20220923
  Transmission Date: 20221027
  Serious: Yes (Other)
  Sender: FDA-Public Use
  Company Number: CA-BEH-2022149985

PATIENT
  Age: 63 Year
  Sex: Male

DRUGS (1)
  1. PRIVIGEN [Suspect]
     Active Substance: HUMAN IMMUNOGLOBULIN G
     Dosage: 5 GRAM
     Route: 065
     Dates: start: 20220915, end: 20220915

REACTIONS (2)
  - Posterior reversible encephalopathy syndrome [Unknown]
  - Hypertension [Unknown]

NARRATIVE: CASE EVENT DATE: 20220915
